FAERS Safety Report 12211335 (Version 6)
Quarter: 2017Q1

REPORT INFORMATION
  Report Type: Spontaneous
  Country: US (occurrence: US)
  Receive Date: 20160325
  Receipt Date: 20170313
  Transmission Date: 20170428
  Serious: Yes (Other)
  Sender: FDA-Public Use
  Company Number: US-PFIZER INC-2016156680

PATIENT
  Age: 73 Year
  Sex: Female

DRUGS (3)
  1. IBRANCE [Suspect]
     Active Substance: PALBOCICLIB
     Indication: BONE CANCER
     Dosage: 100 MG, UNK
     Dates: start: 20151124
  2. IBRANCE [Suspect]
     Active Substance: PALBOCICLIB
     Dosage: 100 MG, UNK
     Dates: start: 20151228
  3. LETROZOLE. [Suspect]
     Active Substance: LETROZOLE
     Dosage: 2.5 MG, UNK

REACTIONS (14)
  - Dizziness [Unknown]
  - Bone pain [Unknown]
  - Constipation [Unknown]
  - Vomiting [Unknown]
  - Insomnia [Unknown]
  - Retching [Unknown]
  - Product use issue [Unknown]
  - Nausea [Unknown]
  - Diarrhoea [Unknown]
  - Arthralgia [Unknown]
  - Back pain [Unknown]
  - Nasopharyngitis [Unknown]
  - Dry skin [Unknown]
  - Fracture [Unknown]

NARRATIVE: CASE EVENT DATE: 20151124
